FAERS Safety Report 12080787 (Version 3)
Quarter: 2016Q1

REPORT INFORMATION
  Report Type: Spontaneous
  Country: US (occurrence: US)
  Receive Date: 20160216
  Receipt Date: 20160301
  Transmission Date: 20160526
  Serious: Yes (Hospitalization, Other)
  Sender: FDA-Public Use
  Company Number: US-TEVA-634860USA

PATIENT
  Age: 79 Year
  Sex: Female
  Weight: 40.8 kg

DRUGS (9)
  1. METOPROLOL TARTRATE. [Concomitant]
     Active Substance: METOPROLOL TARTRATE
     Dosage: 50 MILLIGRAM DAILY;
  2. HYDRALAZINE [Interacting]
     Active Substance: HYDRALAZINE HYDROCHLORIDE
     Indication: HYPERTENSION
     Route: 065
  3. SIMVASTATIN. [Concomitant]
     Active Substance: SIMVASTATIN
     Dosage: 40 MILLIGRAM DAILY;
  4. LORATADINE. [Concomitant]
     Active Substance: LORATADINE
     Dosage: 10 MILLIGRAM DAILY;
  5. ACETYLSALICYLIC ACID [Concomitant]
     Active Substance: ASPIRIN
     Dosage: 81 MILLIGRAM DAILY;
  6. FENOFIBRATE. [Suspect]
     Active Substance: FENOFIBRATE
     Route: 065
  7. ESCITALOPRAM [Concomitant]
     Active Substance: ESCITALOPRAM OXALATE
     Dosage: 10 MILLIGRAM DAILY;
  8. HYDRALAZINE [Interacting]
     Active Substance: HYDRALAZINE HYDROCHLORIDE
     Dosage: 400 MILLIGRAM DAILY;
     Route: 065
  9. VALSARTAN/AMLODIPINE/HYDROCHLOROTHIAZIDE [Concomitant]
     Dosage: 1 DOSAGE FORMS DAILY; VALSARTAN 320 MG, AMLODIPINE 10 MG, HYDROCHLOROTHIAZIDE 35 MG

REACTIONS (3)
  - Drug interaction [Recovered/Resolved]
  - Incorrect dose administered [Recovered/Resolved]
  - Cholecystitis [Recovered/Resolved]
